FAERS Safety Report 9833122 (Version 1)
Quarter: 2014Q1

REPORT INFORMATION
  Report Type: Spontaneous
  Country: US (occurrence: US)
  Receive Date: 20140121
  Receipt Date: 20140121
  Transmission Date: 20141002
  Serious: Yes (Other)
  Sender: FDA-Public Use
  Company Number: US-JNJFOC-20140111527

PATIENT
  Sex: Male

DRUGS (1)
  1. INVOKANA [Suspect]
     Indication: DIABETES MELLITUS
     Route: 048
     Dates: start: 20130618, end: 20130712

REACTIONS (2)
  - Blood creatinine increased [Recovered/Resolved]
  - Glomerular filtration rate increased [Recovered/Resolved]
